FAERS Safety Report 14852599 (Version 2)
Quarter: 2019Q1

REPORT INFORMATION
  Report Type: Spontaneous
  Country: US (occurrence: US)
  Receive Date: 20180507
  Receipt Date: 20190207
  Transmission Date: 20190417
  Serious: Yes (Other)
  Sender: FDA-Public Use
  Company Number: US-ASTRAZENECA-2018SE52308

PATIENT
  Age: 66 Year
  Sex: Female

DRUGS (31)
  1. FLEXERIL [Concomitant]
     Active Substance: CYCLOBENZAPRINE HYDROCHLORIDE
     Route: 048
  2. OXYCODONE [Concomitant]
     Active Substance: OXYCODONE
     Route: 048
  3. TIZANIDINE. [Concomitant]
     Active Substance: TIZANIDINE
     Route: 048
  4. FRUSEMIDE [Concomitant]
     Active Substance: FUROSEMIDE
  5. DICLOFENAC SODIUM. [Concomitant]
     Active Substance: DICLOFENAC SODIUM
  6. LASIX [Concomitant]
     Active Substance: FUROSEMIDE
     Route: 048
  7. TRIAMCINOLONE [Concomitant]
     Active Substance: TRIAMCINOLONE
  8. NEXIUM [Suspect]
     Active Substance: ESOMEPRAZOLE MAGNESIUM
     Route: 048
  9. PROMETHAZINE [Concomitant]
     Active Substance: PROMETHAZINE\PROMETHAZINE HYDROCHLORIDE
  10. NITROSTAT [Concomitant]
     Active Substance: NITROGLYCERIN
  11. PREDNISONE. [Concomitant]
     Active Substance: PREDNISONE
  12. COLESTIPOL HYDROCHLORIDE. [Concomitant]
     Active Substance: COLESTIPOL HYDROCHLORIDE
     Route: 048
  13. BROVANA [Concomitant]
     Active Substance: ARFORMOTEROL TARTRATE
  14. ZETIA [Concomitant]
     Active Substance: EZETIMIBE
     Route: 048
  15. PRAVASTATIN. [Concomitant]
     Active Substance: PRAVASTATIN
     Route: 048
  16. EFFEXOR XR [Concomitant]
     Active Substance: VENLAFAXINE HYDROCHLORIDE
  17. AMBIEN [Concomitant]
     Active Substance: ZOLPIDEM TARTRATE
  18. NEXIUM [Suspect]
     Active Substance: ESOMEPRAZOLE MAGNESIUM
     Route: 048
     Dates: start: 2005, end: 2015
  19. NEXIUM [Suspect]
     Active Substance: ESOMEPRAZOLE MAGNESIUM
     Dosage: GENERIC
     Route: 048
  20. REQUIP [Concomitant]
     Active Substance: ROPINIROLE HYDROCHLORIDE
     Route: 048
  21. CLONAZEPAM. [Concomitant]
     Active Substance: CLONAZEPAM
  22. ALTACE [Concomitant]
     Active Substance: RAMIPRIL
  23. PREMARIN [Concomitant]
     Active Substance: ESTROGENS, CONJUGATED
  24. SINGULAIR [Concomitant]
     Active Substance: MONTELUKAST SODIUM
     Route: 048
  25. POTASSIUM CHLORIDE. [Concomitant]
     Active Substance: POTASSIUM CHLORIDE
     Route: 048
  26. LEVOTHYROXINE SODIUM. [Concomitant]
     Active Substance: LEVOTHYROXINE SODIUM
     Route: 048
  27. TRAMADOL. [Concomitant]
     Active Substance: TRAMADOL
     Route: 048
  28. METHOTREXATE. [Concomitant]
     Active Substance: METHOTREXATE
  29. DIAZEPAM. [Concomitant]
     Active Substance: DIAZEPAM
  30. SYMBICORT [Concomitant]
     Active Substance: BUDESONIDE\FORMOTEROL FUMARATE DIHYDRATE
  31. RANITIDINE. [Concomitant]
     Active Substance: RANITIDINE
     Route: 048

REACTIONS (1)
  - Chronic kidney disease [Unknown]
